FAERS Safety Report 6235664-3 (Version None)
Quarter: 2009Q2

REPORT INFORMATION
  Report Type: 
  Country: None (occurrence: None)
  Receive Date: 20090616
  Receipt Date: 20090604
  Transmission Date: 20091009
  Serious: Yes (Other)
  Sender: FDA-Public Use
  Company Number: 236343K09USA

PATIENT
  Age: 62 Year
  Sex: Female

DRUGS (7)
  1. REBIF [Suspect]
     Indication: MULTIPLE SCLEROSIS
     Dosage: 22 MCG, 3 IN 1 WEEKS, SUBCUTANEOUS
     Route: 058
     Dates: start: 20011201
  2. DIOVAN [Concomitant]
  3. PERSANTINE [Concomitant]
  4. ALDACTONE [Concomitant]
  5. CENESTIN [Concomitant]
  6. ASPIRIN [Concomitant]
  7. VITAMIN D [Concomitant]

REACTIONS (4)
  - DIABETES MELLITUS [None]
  - DIZZINESS [None]
  - MENINGIOMA [None]
  - VISION BLURRED [None]
